FAERS Safety Report 25407040 (Version 1)
Quarter: 2025Q2

REPORT INFORMATION
  Report Type: Spontaneous
  Country: CH (occurrence: CH)
  Receive Date: 20250606
  Receipt Date: 20250606
  Transmission Date: 20250717
  Serious: Yes (Disabling)
  Sender: SANOFI AVENTIS
  Company Number: CH-SANOFI-02523048

PATIENT
  Age: 70 Year
  Sex: Male

DRUGS (4)
  1. DUPIXENT [Suspect]
     Active Substance: DUPILUMAB
     Indication: Dermatitis atopic
     Route: 058
     Dates: start: 20250321, end: 20250321
  2. DUPIXENT [Suspect]
     Active Substance: DUPILUMAB
     Indication: Asthma
  3. DUPIXENT [Suspect]
     Active Substance: DUPILUMAB
     Indication: Neurodermatitis
  4. SYMBICORT [Concomitant]
     Active Substance: BUDESONIDE\FORMOTEROL FUMARATE DIHYDRATE
     Indication: Asthma
     Route: 048

REACTIONS (7)
  - Vocal cord paralysis [Not Recovered/Not Resolved]
  - Dysphonia [Not Recovered/Not Resolved]
  - Neuritis [Not Recovered/Not Resolved]
  - Disease recurrence [Not Recovered/Not Resolved]
  - Malaise [Recovered/Resolved]
  - Headache [Recovered/Resolved]
  - Eosinophilia [Unknown]

NARRATIVE: CASE EVENT DATE: 20250101
